FAERS Safety Report 7850540-8 (Version None)
Quarter: 2011Q4

REPORT INFORMATION
  Report Type: 
  Country: None (occurrence: None)
  Receive Date: 20111021
  Receipt Date: 20110923
  Transmission Date: 20120403
  Serious: No
  Sender: FDA-Public Use
  Company Number: 2010EU005599

PATIENT
  Age: 36 Year
  Sex: Female

DRUGS (3)
  1. SERTRALINE HYDROCHLORIDE [Suspect]
     Indication: LIVER TRANSPLANT
     Dosage: 100 MG,/D, ORAL
     Route: 048
  2. PROGRAF [Suspect]
     Indication: LIVER TRANSPLANT
     Dosage: 10 MG,/D, ORAL
     Route: 048
  3. AZATHIOPRINE [Suspect]

REACTIONS (4)
  - MATERNAL EXPOSURE DURING PREGNANCY [None]
  - IMMUNOSUPPRESSANT DRUG LEVEL DECREASED [None]
  - INTRA-UTERINE DEATH [None]
  - TREATMENT NONCOMPLIANCE [None]
